FAERS Safety Report 4946277-5 (Version None)
Quarter: 2006Q1

REPORT INFORMATION
  Report Type: 
  Country: None (occurrence: None)
  Receive Date: 20060316
  Receipt Date: 20060316
  Transmission Date: 20060701
  Serious: No
  Sender: FDA-Public Use
  Company Number: None

PATIENT
  Age: 47 Year
  Sex: Female
  Weight: 72.5755 kg

DRUGS (1)
  1. AMBIEN [Suspect]
     Indication: INSOMNIA
     Dosage: 1 TABLET ONCE A WEEK
     Dates: start: 20050101, end: 20060301

REACTIONS (2)
  - ABNORMAL BEHAVIOUR [None]
  - AMNESIA [None]
